FAERS Safety Report 6258071-6 (Version None)
Quarter: 2009Q3

REPORT INFORMATION
  Report Type: 
  Country: None (occurrence: None)
  Receive Date: 20090702
  Receipt Date: 20090702
  Transmission Date: 20100115
  Serious: Yes (Hospitalization)
  Sender: FDA-Public Use
  Company Number: None

PATIENT
  Sex: Female
  Weight: 47 kg

DRUGS (4)
  1. DOXORUBICIN HCL [Suspect]
     Dosage: 62 MG
  2. G-CSF (FILGRASTIM, AMGEN) [Suspect]
     Dosage: 6 MG
  3. TAXOL [Suspect]
     Dosage: 219 MG
  4. CISPLATIN [Suspect]
     Dosage: 69 MG

REACTIONS (3)
  - CHILLS [None]
  - LUNG INFECTION [None]
  - TREMOR [None]
